FAERS Safety Report 5538327-2 (Version None)
Quarter: 2007Q4

REPORT INFORMATION
  Report Type: 
  Country: None (occurrence: None)
  Receive Date: 20071205
  Receipt Date: 20071119
  Transmission Date: 20080405
  Serious: No
  Sender: FDA-Public Use
  Company Number: VNL_00615_2007

PATIENT
  Sex: Female
  Weight: 61.2356 kg

DRUGS (14)
  1. APOKYN [Suspect]
     Indication: PARKINSON'S DISEASE
     Dosage: SEE IMAGE
     Route: 058
     Dates: start: 20070608, end: 20070608
  2. APOKYN [Suspect]
     Indication: PARKINSON'S DISEASE
     Dosage: SEE IMAGE
     Route: 058
     Dates: start: 20070608, end: 20070609
  3. APOKYN [Suspect]
     Indication: PARKINSON'S DISEASE
     Dosage: SEE IMAGE
     Route: 058
     Dates: start: 20070610, end: 20070610
  4. APOKYN [Suspect]
     Indication: PARKINSON'S DISEASE
     Dosage: SEE IMAGE
     Route: 058
     Dates: start: 20070611, end: 20070611
  5. APOKYN [Suspect]
     Indication: PARKINSON'S DISEASE
     Dosage: SEE IMAGE
     Route: 058
     Dates: start: 20070612, end: 20070612
  6. APOKYN [Suspect]
     Indication: PARKINSON'S DISEASE
     Dosage: 0.2 ML BID SUBCUTANEOUS
     Route: 058
     Dates: start: 20070613, end: 20070613
  7. EFFEXOR XR [Concomitant]
  8. CARBIDOPA AND LEVODOPA [Concomitant]
  9. GABAPENTIN [Concomitant]
  10. MIRAPEX [Concomitant]
  11. DICLOFENAC [Concomitant]
  12. VITAMIN B12 NOS [Concomitant]
  13. VITAMIN D [Concomitant]
  14. SINEMET [Concomitant]

REACTIONS (4)
  - DRUG INEFFECTIVE [None]
  - HALLUCINATION, VISUAL [None]
  - PARANOIA [None]
  - SOMNOLENCE [None]
